FAERS Safety Report 15903054 (Version 1)
Quarter: 2019Q1

REPORT INFORMATION
  Report Type: Spontaneous
  Country: DE (occurrence: DE)
  Receive Date: 20190202
  Receipt Date: 20190202
  Transmission Date: 20190417
  Serious: Yes (Life-Threatening, Hospitalization, Other)
  Sender: FDA-Public Use
  Company Number: DE-AUROBINDO-AUR-APL-2019-004686

PATIENT

DRUGS (20)
  1. QUETIAPINE FILM-COATED TABLET [Suspect]
     Active Substance: QUETIAPINE
     Indication: PRODUCT USED FOR UNKNOWN INDICATION
     Dosage: 50 MILLIGRAM, ONCE A DAY
     Route: 048
     Dates: start: 20131103
  2. ABILIFY [Interacting]
     Active Substance: ARIPIPRAZOLE
     Indication: PRODUCT USED FOR UNKNOWN INDICATION
     Dosage: 10 MILLIGRAM, ONCE A DAY
     Route: 048
     Dates: start: 20131101, end: 20131112
  3. QUETIAPINE FILM-COATED TABLET [Interacting]
     Active Substance: QUETIAPINE
     Dosage: 300 MILLIGRAM, ONCE A DAY
     Route: 048
     Dates: start: 20131109
  4. QUETIAPINE FILM-COATED TABLET [Interacting]
     Active Substance: QUETIAPINE
     Dosage: 400 MILLIGRAM, ONCE A DAY
     Route: 048
     Dates: start: 20131122
  5. ABILIFY [Interacting]
     Active Substance: ARIPIPRAZOLE
     Dosage: 20 MILLIGRAM, ONCE A DAY
     Route: 048
     Dates: start: 20131113, end: 20131115
  6. VALPROATE [Interacting]
     Active Substance: VALPROIC ACID
     Dosage: 1800 MILLIGRAM, ONCE A DAY
     Route: 048
     Dates: start: 20140316, end: 20140401
  7. QUETIAPINE FILM-COATED TABLET [Interacting]
     Active Substance: QUETIAPINE
     Dosage: 200 MILLIGRAM, ONCE A DAY
     Route: 048
     Dates: start: 20131106
  8. ABILIFY [Interacting]
     Active Substance: ARIPIPRAZOLE
     Dosage: 30 MILLIGRAM, ONCE A DAY
     Route: 048
     Dates: start: 20131116, end: 20131215
  9. VALPROATE [Interacting]
     Active Substance: VALPROIC ACID
     Indication: PRODUCT USED FOR UNKNOWN INDICATION
     Dosage: 900 MILLIGRAM, ONCE A DAY
     Route: 048
     Dates: start: 20130301, end: 20131101
  10. FINASTERID [Concomitant]
     Active Substance: FINASTERIDE
     Indication: PRODUCT USED FOR UNKNOWN INDICATION
     Dosage: 5 MILLIGRAM, ONCE A DAY
     Route: 048
     Dates: start: 20120101
  11. VALPROATE [Interacting]
     Active Substance: VALPROIC ACID
     Dosage: 1600 MILLIGRAM, ONCE A DAY
     Route: 048
     Dates: start: 20131102, end: 20131110
  12. QUETIAPINE FILM-COATED TABLET [Interacting]
     Active Substance: QUETIAPINE
     Dosage: 100 MILLIGRAM, ONCE A DAY
     Route: 048
     Dates: start: 20131104
  13. QUETIAPINE FILM-COATED TABLET [Interacting]
     Active Substance: QUETIAPINE
     Dosage: 400 MILLIGRAM, ONCE A DAY
     Route: 048
     Dates: start: 20131113
  14. QUETIAPINE FILM-COATED TABLET [Interacting]
     Active Substance: QUETIAPINE
     Dosage: 450 MILLIGRAM, ONCE A DAY
     Route: 048
     Dates: start: 20131116
  15. ALFUZOSIN [Concomitant]
     Active Substance: ALFUZOSIN
     Indication: PRODUCT USED FOR UNKNOWN INDICATION
     Dosage: 10 MILLIGRAM, ONCE A DAY
     Route: 048
     Dates: start: 20120101
  16. LITHIUM. [Concomitant]
     Active Substance: LITHIUM
     Indication: PRODUCT USED FOR UNKNOWN INDICATION
     Dosage: UNK
     Route: 065
  17. VALPROATE [Interacting]
     Active Substance: VALPROIC ACID
     Dosage: 2400 MILLIGRAM, ONCE A DAY
     Route: 048
     Dates: start: 20131111, end: 20140315
  18. VALPROATE [Interacting]
     Active Substance: VALPROIC ACID
     Dosage: 1800 MILLIGRAM, ONCE A DAY
     Route: 048
     Dates: start: 20150402
  19. QUETIAPINE FILM-COATED TABLET [Interacting]
     Active Substance: QUETIAPINE
     Dosage: 500 MILLIGRAM, ONCE A DAY
     Route: 048
     Dates: start: 20131119
  20. VALPROATE [Interacting]
     Active Substance: VALPROIC ACID
     Dosage: 200 MILLIGRAM, ONCE A DAY
     Route: 048
     Dates: start: 20131106, end: 20131108

REACTIONS (3)
  - Coma [Recovered/Resolved]
  - Drug interaction [Unknown]
  - Parkinsonism [Unknown]

NARRATIVE: CASE EVENT DATE: 20131121
